FAERS Safety Report 7942922-0 (Version None)
Quarter: 2011Q4

REPORT INFORMATION
  Report Type: 
  Country: None (occurrence: None)
  Receive Date: 20111128
  Receipt Date: 20111116
  Transmission Date: 20120403
  Serious: No
  Sender: FDA-Public Use
  Company Number: JP-MERCK-1106USA00720

PATIENT
  Age: 72 Year
  Sex: Female

DRUGS (8)
  1. FOSAMAX [Concomitant]
     Route: 048
  2. AMARYL [Concomitant]
     Route: 065
  3. METFORMIN HCL [Concomitant]
     Route: 065
  4. CALBLOCK [Concomitant]
     Route: 065
  5. ASPIRIN [Concomitant]
     Route: 065
  6. JANUVIA [Suspect]
     Indication: TYPE 2 DIABETES MELLITUS
     Route: 048
     Dates: start: 20100610, end: 20100621
  7. MICARDIS [Concomitant]
     Route: 065
  8. CRESTOR [Concomitant]
     Route: 065

REACTIONS (6)
  - ORTHOSTATIC HYPOTENSION [None]
  - VOMITING [None]
  - HYPERHIDROSIS [None]
  - NAUSEA [None]
  - MUSCULOSKELETAL CHEST PAIN [None]
  - PYREXIA [None]
